FAERS Safety Report 21297862 (Version 1)
Quarter: 2022Q3

REPORT INFORMATION
  Report Type: Spontaneous
  Country: US (occurrence: US)
  Receive Date: 20220906
  Receipt Date: 20220906
  Transmission Date: 20221027
  Serious: Yes (Hospitalization)
  Sender: FDA-Public Use
  Company Number: US-MYLANLABS-2022M1090807

PATIENT
  Age: 48 Year
  Sex: Male

DRUGS (4)
  1. FLUOROURACIL [Suspect]
     Active Substance: FLUOROURACIL
     Indication: Colon cancer
     Dosage: RECEIVED 10 ROUNDS; FOLFIRI REGIMEN (INFUSION
     Route: 065
  2. LEUCOVORIN CALCIUM [Suspect]
     Active Substance: LEUCOVORIN CALCIUM
     Indication: Colon cancer
     Dosage: RECEIVED 10 ROUNDS; FOLFIRI REGIMEN
     Route: 065
  3. AVASTIN [Suspect]
     Active Substance: BEVACIZUMAB
     Indication: Colon cancer
     Dosage: RECEIVED 10 ROUNDS
     Route: 065
  4. IRINOTECAN [Suspect]
     Active Substance: IRINOTECAN
     Indication: Colon cancer
     Dosage: RECEIVED 10 ROUNDS; FOLFIRI REGIMEN
     Route: 065

REACTIONS (8)
  - Chest discomfort [Unknown]
  - Abdominal pain upper [Unknown]
  - Administration site extravasation [Unknown]
  - Erosive oesophagitis [Unknown]
  - Administration site erosion [Unknown]
  - Oesophagobronchial fistula [Unknown]
  - Pneumonia aspiration [Unknown]
  - Product administration error [Unknown]
